FAERS Safety Report 7905001-4 (Version None)
Quarter: 2011Q4

REPORT INFORMATION
  Report Type: 
  Country: None (occurrence: None)
  Receive Date: 20111109
  Receipt Date: 20111102
  Transmission Date: 20120403
  Serious: Yes (Hospitalization, Other)
  Sender: FDA-Public Use
  Company Number: PHEH2011US08503

PATIENT
  Sex: Male

DRUGS (9)
  1. MEPRON [Concomitant]
  2. ISENTRESS [Concomitant]
  3. EXJADE [Suspect]
     Indication: IRON METABOLISM DISORDER
     Dosage: 1000 MG, DAILY
     Route: 048
     Dates: start: 20110601
  4. AUGMENTIN '125' [Concomitant]
  5. LEXIVA [Concomitant]
  6. TRUVADA [Concomitant]
  7. NEUPOGEN [Concomitant]
  8. PROCRIT [Concomitant]
  9. IMODIUM [Concomitant]

REACTIONS (4)
  - ANTIBIOTIC RESISTANT STAPHYLOCOCCUS TEST POSITIVE [None]
  - HIV INFECTION [None]
  - STAPHYLOCOCCAL BACTERAEMIA [None]
  - PLEURAL EFFUSION [None]
